FAERS Safety Report 16651591 (Version 2)
Quarter: 2019Q3

REPORT INFORMATION
  Report Type: Spontaneous
  Country: US (occurrence: US)
  Receive Date: 20190731
  Receipt Date: 20190910
  Transmission Date: 20191004
  Serious: No
  Sender: FDA-Public Use
  Company Number: US-JNJFOC-20190741569

PATIENT
  Age: 33 Year
  Sex: Female
  Weight: 74.91 kg

DRUGS (1)
  1. STELARA [Suspect]
     Active Substance: USTEKINUMAB
     Indication: CROHN^S DISEASE
     Route: 058
     Dates: start: 20190214

REACTIONS (2)
  - Complication associated with device [Unknown]
  - Product dose omission [Unknown]

NARRATIVE: CASE EVENT DATE: 20190729
